FAERS Safety Report 22322895 (Version 1)
Quarter: 2023Q2

REPORT INFORMATION
  Report Type: Spontaneous
  Country: US (occurrence: US)
  Receive Date: 20230516
  Receipt Date: 20230516
  Transmission Date: 20230721
  Serious: No
  Sender: FDA-Public Use
  Company Number: US-JNJFOC-20230519201

PATIENT
  Age: 84 Year
  Sex: Male

DRUGS (6)
  1. ZYTIGA [Suspect]
     Active Substance: ABIRATERONE ACETATE
     Indication: Product used for unknown indication
     Route: 048
     Dates: end: 20220805
  2. ZYTIGA [Suspect]
     Active Substance: ABIRATERONE ACETATE
     Dosage: 750 MG
     Route: 048
     Dates: start: 20230117
  3. ZYTIGA [Suspect]
     Active Substance: ABIRATERONE ACETATE
     Route: 048
  4. ORGOVYX [Suspect]
     Active Substance: RELUGOLIX
     Indication: Prostate cancer
     Route: 048
     Dates: start: 20220518
  5. ORGOVYX [Suspect]
     Active Substance: RELUGOLIX
     Route: 048
     Dates: start: 20220519
  6. PREDNISONE [Concomitant]
     Active Substance: PREDNISONE
     Dates: start: 20220714

REACTIONS (7)
  - Fatigue [Not Recovered/Not Resolved]
  - Hot flush [Recovering/Resolving]
  - Asthenia [Unknown]
  - Blood pressure increased [Not Recovered/Not Resolved]
  - Back pain [Unknown]
  - Adverse drug reaction [Unknown]
  - Nocturia [Unknown]

NARRATIVE: CASE EVENT DATE: 20220101
